FAERS Safety Report 10982812 (Version 1)
Quarter: 2015Q2

REPORT INFORMATION
  Report Type: Spontaneous
  Country: US (occurrence: None)
  Receive Date: 20150402
  Receipt Date: 20150402
  Transmission Date: 20150821
  Serious: No
  Sender: FDA-Public Use
  Company Number: None

PATIENT
  Age: 22 Year
  Sex: Female
  Weight: 52.16 kg

DRUGS (3)
  1. LAMOTRIGINE. [Concomitant]
     Active Substance: LAMOTRIGINE
  2. PEROXETINE [Concomitant]
  3. LAMOTRIGINE 200 MG [Suspect]
     Active Substance: LAMOTRIGINE
     Indication: BIPOLAR DISORDER
     Dosage: TAKEN BY MOUTH, 1 PILL

REACTIONS (9)
  - Paraesthesia [None]
  - Drug dose omission [None]
  - Fear [None]
  - Nausea [None]
  - Emotional disorder [None]
  - Dizziness [None]
  - Hyperacusis [None]
  - Crying [None]
  - Aggression [None]

NARRATIVE: CASE EVENT DATE: 20150401
